FAERS Safety Report 11245557 (Version 1)
Quarter: 2015Q3

REPORT INFORMATION
  Report Type: Spontaneous
  Country: US (occurrence: US)
  Receive Date: 20150707
  Receipt Date: 20150707
  Transmission Date: 20151125
  Serious: Yes (Other)
  Sender: FDA-Public Use
  Company Number: US-ASTRAZENECA-2015SE65148

PATIENT
  Age: 58 Year
  Sex: Female
  Weight: 113.4 kg

DRUGS (6)
  1. ALLERGY PILLS [Concomitant]
     Active Substance: UNSPECIFIED INGREDIENT
  2. ONGLYZA [Suspect]
     Active Substance: SAXAGLIPTIN HYDROCHLORIDE
     Route: 048
  3. BYDUREON [Suspect]
     Active Substance: EXENATIDE
     Indication: TYPE 2 DIABETES MELLITUS
     Route: 058
     Dates: start: 201503
  4. ACIPHEX [Concomitant]
     Active Substance: RABEPRAZOLE SODIUM
  5. ZOCOR [Concomitant]
     Active Substance: SIMVASTATIN
  6. GLIMEPIRIDE. [Concomitant]
     Active Substance: GLIMEPIRIDE

REACTIONS (5)
  - Injection site pain [Unknown]
  - Injection site pruritus [Unknown]
  - Drug hypersensitivity [Unknown]
  - Injection site mass [Not Recovered/Not Resolved]
  - Injection site erythema [Unknown]

NARRATIVE: CASE EVENT DATE: 201503
